FAERS Safety Report 11441990 (Version 1)
Quarter: 2015Q3

REPORT INFORMATION
  Report Type: Spontaneous
  Country: US (occurrence: US)
  Receive Date: 20150901
  Receipt Date: 20150901
  Transmission Date: 20151125
  Serious: Yes (Hospitalization, Other)
  Sender: FDA-Public Use
  Company Number: US-BRISTOL-MYERS SQUIBB COMPANY-BMS-2015-056328

PATIENT
  Sex: Male

DRUGS (2)
  1. ABILIFY [Suspect]
     Active Substance: ARIPIPRAZOLE
     Indication: BIPOLAR DISORDER
     Dosage: 5 MG, QD
     Route: 048
     Dates: start: 2003, end: 2010
  2. ABILIFY [Suspect]
     Active Substance: ARIPIPRAZOLE
     Dosage: 15 MG, UNK
     Route: 048
     Dates: start: 2010, end: 2014

REACTIONS (29)
  - Nausea [Recovering/Resolving]
  - Diarrhoea [Recovering/Resolving]
  - Pruritus [Recovering/Resolving]
  - Dyspnoea [Recovering/Resolving]
  - Vomiting [Recovering/Resolving]
  - Nasal congestion [Recovering/Resolving]
  - Vision blurred [Recovering/Resolving]
  - Mood swings [Recovering/Resolving]
  - Irritable bowel syndrome [Recovering/Resolving]
  - Tongue discolouration [Recovering/Resolving]
  - Dental caries [Recovering/Resolving]
  - Hyperhidrosis [Recovering/Resolving]
  - Alopecia [Recovering/Resolving]
  - Ocular hyperaemia [Recovering/Resolving]
  - Weight increased [Recovering/Resolving]
  - Decreased appetite [Recovering/Resolving]
  - Depression [Recovering/Resolving]
  - Pain in extremity [Recovering/Resolving]
  - Dysphagia [Recovering/Resolving]
  - Erectile dysfunction [Recovering/Resolving]
  - Paranoia [Recovering/Resolving]
  - Anxiety [Recovering/Resolving]
  - Drug dependence [Recovering/Resolving]
  - Hospitalisation [Recovered/Resolved]
  - Blood glucose increased [Recovered/Resolved]
  - Headache [Recovering/Resolving]
  - Chest pain [Recovering/Resolving]
  - Onychophagia [Not Recovered/Not Resolved]
  - Breath odour [Recovering/Resolving]

NARRATIVE: CASE EVENT DATE: 2010
